FAERS Safety Report 4602366-6 (Version None)
Quarter: 2005Q1

REPORT INFORMATION
  Report Type: 
  Country: None (occurrence: None)
  Receive Date: 20050307
  Receipt Date: 20050218
  Transmission Date: 20050727
  Serious: Yes (Hospitalization)
  Sender: FDA-Public Use
  Company Number: 2005031588

PATIENT
  Age: 76 Year
  Sex: Female
  Weight: 53.5244 kg

DRUGS (6)
  1. TOLTERODINE TARTRATE [Suspect]
     Indication: POLLAKIURIA
     Dosage: 4 MG (4 MG, DAILY INTERVAL: EVERY DAY), ORAL
     Route: 048
     Dates: start: 20040201
  2. OXYCODONE HYDROCHLORIDE AND ACETAMINOPHEN [Concomitant]
  3. QUININE (QUININE) [Concomitant]
  4. WARFARIN SODIUM [Concomitant]
  5. LIPITOR [Concomitant]
  6. CILOSTAZOL [Concomitant]

REACTIONS (2)
  - DRUG EFFECT DECREASED [None]
  - FALL [None]
